FAERS Safety Report 10019733 (Version 2)
Quarter: 2014Q1

REPORT INFORMATION
  Report Type: Spontaneous
  Country: US (occurrence: US)
  Receive Date: 20140318
  Receipt Date: 20140318
  Transmission Date: 20141002
  Serious: No
  Sender: FDA-Public Use
  Company Number: US-GALDERMA-US14000141

PATIENT
  Age: 23 Year
  Sex: Female
  Weight: 63.5 kg

DRUGS (5)
  1. MIRVASO (BRIMONIDINE) TOPICAL GEL, 0.33% [Suspect]
     Indication: ROSACEA
     Dosage: 0.33%
     Route: 061
     Dates: start: 20131224, end: 20140101
  2. CLEARASIL CLEANSER [Concomitant]
     Indication: THERAPEUTIC SKIN CARE TOPICAL
     Route: 061
  3. PROBIOTIC ACIDOPHILUS EX, SP [Concomitant]
     Route: 048
  4. PANTOPRAZOLE DELAYED RELEASE [Concomitant]
     Dosage: 40 MG
     Route: 048
  5. PREDNISONE [Concomitant]
     Dosage: 50 MG
     Route: 048
     Dates: start: 20140102, end: 20140107

REACTIONS (5)
  - Feeling hot [Recovered/Resolved]
  - Pallor [Recovering/Resolving]
  - Skin warm [Recovering/Resolving]
  - Erythema [Recovering/Resolving]
  - Flushing [Recovering/Resolving]
